FAERS Safety Report 7197623-6 (Version None)
Quarter: 2010Q4

REPORT INFORMATION
  Report Type: 
  Country: None (occurrence: None)
  Receive Date: 20101214
  Receipt Date: 20101201
  Transmission Date: 20110411
  Serious: Yes (Disabling, Other)
  Sender: FDA-Public Use
  Company Number: 2010MA005062

PATIENT
  Age: 87 Year
  Sex: Female

DRUGS (6)
  1. TIZANIDINE HYDROCHLORIDE [Suspect]
     Indication: MUSCLE SPASMS
     Dosage: 4 MG;BID;PO
     Route: 048
     Dates: start: 20101102, end: 20101119
  2. CLOPIDOGREL [Concomitant]
  3. WARFARIN [Concomitant]
  4. OMEPRAZOLE [Concomitant]
  5. SIMVASTATIN [Concomitant]
  6. PREV MEDS [Concomitant]

REACTIONS (2)
  - HYPOTENSION [None]
  - UNRESPONSIVE TO STIMULI [None]
